FAERS Safety Report 10168372 (Version 1)
Quarter: 2014Q2

REPORT INFORMATION
  Report Type: Spontaneous
  Country: US (occurrence: US)
  Receive Date: 20140513
  Receipt Date: 20140513
  Transmission Date: 20141212
  Serious: No
  Sender: FDA-Public Use
  Company Number: US-009507513-1404USA015247

PATIENT
  Age: 53 Year
  Sex: Female

DRUGS (6)
  1. PEGINTRON [Suspect]
     Indication: HEPATITIS C
     Dosage: 0.5 ML, QW; ROUTE WAS REPORTED AS INJECTION
     Dates: start: 20140418
  2. REBETOL [Suspect]
     Indication: HEPATITIS C
     Dosage: 200 MG/THREE TABLETS IN THE MORNING AND TWO TABLETS AT NIGHT
     Route: 048
  3. IBUPROFEN [Concomitant]
     Dosage: 600-800 MG
  4. PROCARDIA [Concomitant]
     Dosage: 90 MG
  5. VITAMINS (UNSPECIFIED) [Concomitant]
  6. SOVALDI [Concomitant]
     Dosage: 1 DF, QD
     Route: 048

REACTIONS (8)
  - Bed rest [Not Recovered/Not Resolved]
  - Malaise [Not Recovered/Not Resolved]
  - Nausea [Not Recovered/Not Resolved]
  - Fatigue [Not Recovered/Not Resolved]
  - Pain [Not Recovered/Not Resolved]
  - Influenza like illness [Not Recovered/Not Resolved]
  - Rash [Not Recovered/Not Resolved]
  - Wrong technique in drug usage process [Unknown]
